FAERS Safety Report 18008344 (Version 1)
Quarter: 2020Q3

REPORT INFORMATION
  Report Type: Spontaneous
  Country: US (occurrence: US)
  Receive Date: 20200710
  Receipt Date: 20200710
  Transmission Date: 20201103
  Serious: Yes (Hospitalization)
  Sender: FDA-Public Use
  Company Number: US-ROCHE-2624292

PATIENT

DRUGS (4)
  1. AVASTIN [Suspect]
     Active Substance: BEVACIZUMAB
     Route: 065
  2. CALCIUM [Concomitant]
     Active Substance: CALCIUM
  3. AVASTIN [Suspect]
     Active Substance: BEVACIZUMAB
     Indication: PRODUCT USED FOR UNKNOWN INDICATION
     Route: 065
  4. OXALIPLATINE [Concomitant]
     Active Substance: OXALIPLATIN

REACTIONS (3)
  - Hypotension [Unknown]
  - Hyperhidrosis [Unknown]
  - Seizure [Unknown]
